FAERS Safety Report 24859887 (Version 1)
Quarter: 2025Q1

REPORT INFORMATION
  Report Type: Spontaneous
  Country: JP (occurrence: JP)
  Receive Date: 20250119
  Receipt Date: 20250119
  Transmission Date: 20250409
  Serious: Yes (Death, Congenital Anomaly)
  Sender: NOVARTIS
  Company Number: JP-002147023-NVSJ2025JP001010

PATIENT

DRUGS (2)
  1. FEMARA [Suspect]
     Active Substance: LETROZOLE
     Indication: Foetal exposure during pregnancy
     Route: 064
     Dates: start: 20240302, end: 20240306
  2. FEMARA [Suspect]
     Active Substance: LETROZOLE
     Route: 064
     Dates: start: 20240404, end: 20240408

REACTIONS (3)
  - Cytogenetic abnormality [Fatal]
  - Foetal death [Fatal]
  - Foetal exposure during pregnancy [Unknown]
